FAERS Safety Report 20499623 (Version 3)
Quarter: 2022Q1

REPORT INFORMATION
  Report Type: Spontaneous
  Country: JP (occurrence: JP)
  Receive Date: 20220222
  Receipt Date: 20220322
  Transmission Date: 20220424
  Serious: Yes (Other)
  Sender: FDA-Public Use
  Company Number: JP-ASTELLAS-2022JP002464

PATIENT
  Age: 8 Decade
  Sex: Female

DRUGS (2)
  1. PADCEV [Suspect]
     Active Substance: ENFORTUMAB VEDOTIN-EJFV
     Indication: Ureteric cancer
     Dosage: UNK UNK, UNKNOWN FREQ.
     Route: 041
     Dates: start: 20220118
  2. PADCEV [Suspect]
     Active Substance: ENFORTUMAB VEDOTIN-EJFV
     Dosage: UNK UNK, UNKNOWN FREQ.
     Route: 041
     Dates: start: 20220222

REACTIONS (3)
  - Neutropenia [Recovered/Resolved]
  - Taste disorder [Recovering/Resolving]
  - Rash [Recovering/Resolving]
